FAERS Safety Report 4972226-X (Version None)
Quarter: 2006Q2

REPORT INFORMATION
  Report Type: 
  Country: None (occurrence: None)
  Receive Date: 20060413
  Receipt Date: 20060406
  Transmission Date: 20061013
  Serious: Yes (Hospitalization)
  Sender: FDA-Public Use
  Company Number: FR-GLAXOSMITHKLINE-B0420147A

PATIENT
  Age: 91 Year
  Sex: Male

DRUGS (9)
  1. AUGMENTIN '125' [Suspect]
     Indication: PNEUMONIA ASPIRATION
     Dosage: 3G PER DAY
     Route: 042
     Dates: start: 20060210, end: 20060201
  2. AUGMENTIN '125' [Suspect]
     Indication: PNEUMONIA ASPIRATION
     Dosage: 3G PER DAY
     Route: 048
     Dates: start: 20060201, end: 20060220
  3. CIFLOX [Suspect]
     Indication: PNEUMONIA ASPIRATION
     Route: 042
     Dates: start: 20060210, end: 20060220
  4. NEXIUM [Concomitant]
     Route: 048
  5. CALCIPARINE [Concomitant]
     Route: 065
  6. MOPRAL [Concomitant]
     Route: 042
  7. PLAVIX [Concomitant]
     Route: 065
  8. MODOPAR [Concomitant]
     Route: 065
  9. NORMACOL [Concomitant]
     Route: 065

REACTIONS (2)
  - BLOOD CREATININE INCREASED [None]
  - RENAL FAILURE [None]
